FAERS Safety Report 7624364-0 (Version None)
Quarter: 2011Q3

REPORT INFORMATION
  Report Type: 
  Country: None (occurrence: None)
  Receive Date: 20110712
  Receipt Date: 20110704
  Transmission Date: 20111222
  Serious: Yes (Hospitalization)
  Sender: FDA-Public Use
  Company Number: 1000022013

PATIENT
  Age: 50 Year
  Sex: Female
  Weight: 72 kg

DRUGS (12)
  1. ROFLUMILAST (ROFLUMILAST) (500 MICROGRAM, TABLETS) [Suspect]
     Indication: CHRONIC OBSTRUCTIVE PULMONARY DISEASE
     Dosage: 500 MCG (500 MCG, 1 IN 1 D),ORAL
     Route: 048
     Dates: start: 20110421
  2. AERIUS(DESLORATADINE)(5 MILLIGRAM, TABLETS)(DESLORATADINE) [Concomitant]
  3. PANTOPRAZOLE (PANTOPRAZOLE)(40 MILLIGRAM, TABLETS)(PANTOPRAZOLE) [Concomitant]
  4. AZITHROMYCIN (250 MILLIGRAM, TABLETS) [Concomitant]
  5. PREDNISOLONE [Concomitant]
  6. VENTOLINE (SALBUTAMOL) (SALBUTAMOL) [Concomitant]
  7. ASCAL (ACETYLSALICYLATE CALCIUM)(100 MILL IGRAM)(ACETYLSALICYLATE CALC [Concomitant]
  8. LIXOTIDE (FLUTICASONE)(FLUTICASONE) [Concomitant]
  9. CRESTOR(ROSUVASTATIN)(20 MILLIGRAM, TABLETS)(ROSUVASTATIN) [Concomitant]
  10. TIOTROPIUM (TIOTROPIUM) (TIOTROPIUM) [Concomitant]
  11. COMBIVENT(SALBUTAMOL, IPRATROPIUM)(SALBUTAMOL, IPRATROPIUM) [Concomitant]
  12. ATROVENT (IPRATROPIUM BROMIDE)(IPRATROPIUM BROMIDE) [Concomitant]

REACTIONS (8)
  - DYSPNOEA [None]
  - DEPRESSION [None]
  - PHARYNGEAL OEDEMA [None]
  - MYALGIA [None]
  - INSOMNIA [None]
  - HYPERHIDROSIS [None]
  - LYMPHADENOPATHY [None]
  - MUSCLE SPASMS [None]
